FAERS Safety Report 16280854 (Version 1)
Quarter: 2019Q2

REPORT INFORMATION
  Report Type: Spontaneous
  Country: FR (occurrence: FR)
  Receive Date: 20190507
  Receipt Date: 20190507
  Transmission Date: 20190711
  Serious: Yes (Other)
  Sender: FDA-Public Use
  Company Number: FR-TEVA-2019-FR-1045727

PATIENT
  Age: 41 Year
  Sex: Female
  Weight: 60 kg

DRUGS (4)
  1. LEVOFLOXACINE [Suspect]
     Active Substance: LEVOFLOXACIN
     Indication: STENOTROPHOMONAS SEPSIS
     Route: 041
     Dates: start: 20160627, end: 20160701
  2. YDRALBUM [Suspect]
     Active Substance: ALBUMIN HUMAN
     Route: 042
     Dates: start: 20160628, end: 20160628
  3. VFEND [Concomitant]
     Active Substance: VORICONAZOLE
     Indication: BRONCHOPULMONARY ASPERGILLOSIS
     Route: 041
     Dates: start: 20160623, end: 20160715
  4. VIALEBEX [Suspect]
     Active Substance: ALBUMIN HUMAN
     Dates: start: 20160628, end: 20160629

REACTIONS (3)
  - Cholestasis [Recovered/Resolved]
  - Blood alkaline phosphatase increased [Recovered/Resolved]
  - Gamma-glutamyltransferase increased [Recovered/Resolved]

NARRATIVE: CASE EVENT DATE: 20160701
